FAERS Safety Report 9628884 (Version 1)
Quarter: 2013Q4

REPORT INFORMATION
  Report Type: Spontaneous
  Country: AU (occurrence: AU)
  Receive Date: 20131017
  Receipt Date: 20131017
  Transmission Date: 20140711
  Serious: No
  Sender: FDA-Public Use
  Company Number: AU-JNJFOC-20131002711

PATIENT
  Sex: 0

DRUGS (1)
  1. FENTANYL [Suspect]
     Indication: PRODUCT USED FOR UNKNOWN INDICATION
     Route: 042

REACTIONS (4)
  - Incorrect route of drug administration [Unknown]
  - Overdose [Unknown]
  - Drug diversion [Unknown]
  - Intentional drug misuse [Unknown]
